FAERS Safety Report 18011122 (Version 1)
Quarter: 2020Q3

REPORT INFORMATION
  Report Type: Spontaneous
  Country: FR (occurrence: FR)
  Receive Date: 20200711
  Receipt Date: 20200711
  Transmission Date: 20201103
  Serious: Yes (Hospitalization)
  Sender: FDA-Public Use
  Company Number: NVSC2020FR191142

PATIENT
  Age: 32 Year
  Sex: Female

DRUGS (3)
  1. ZOPICLONE [Suspect]
     Active Substance: ZOPICLONE
     Indication: DRUG ABUSE
     Dosage: 5 DF, ONCE/SINGLE (5 CP)
     Route: 048
     Dates: start: 20200524, end: 20200524
  2. ZOLPIDEM [Suspect]
     Active Substance: ZOLPIDEM TARTRATE
     Indication: DRUG ABUSE
     Dosage: 6 DF, ONCE/SINGLE (6 CP)
     Route: 048
     Dates: start: 20200524, end: 20200524
  3. ALCOOL [Suspect]
     Active Substance: ALCOHOL
     Indication: ALCOHOL USE
     Dosage: UNK (NON RENSEIGN?E)
     Route: 048

REACTIONS (3)
  - Tachycardia [Recovered/Resolved]
  - Drug abuse [Not Recovered/Not Resolved]
  - Mydriasis [Recovered/Resolved]

NARRATIVE: CASE EVENT DATE: 20200524
